FAERS Safety Report 8178798-9 (Version None)
Quarter: 2012Q1

REPORT INFORMATION
  Report Type: 
  Country: None (occurrence: None)
  Receive Date: 20120301
  Receipt Date: 20120223
  Transmission Date: 20120608
  Serious: Yes (Hospitalization)
  Sender: FDA-Public Use
  Company Number: IT-BRISTOL-MYERS SQUIBB COMPANY-16323339

PATIENT
  Age: 65 Year
  Sex: Male
  Weight: 86 kg

DRUGS (14)
  1. PEMETREXED DISODIUM [Suspect]
     Indication: NON-SMALL CELL LUNG CANCER
     Route: 042
     Dates: start: 20111220
  2. VITAMIN B-12 [Concomitant]
     Dates: start: 20111213
  3. DEXAMETHASONE [Concomitant]
     Dates: start: 20111219, end: 20111221
  4. ACETAMINOPHEN [Concomitant]
     Dates: start: 20111214
  5. CISPLATIN [Suspect]
     Indication: NON-SMALL CELL LUNG CANCER
     Route: 042
     Dates: start: 20111220
  6. ENOXAPARIN [Concomitant]
     Dates: start: 20111214
  7. PURSENNID [Concomitant]
     Dates: start: 20111216, end: 20111223
  8. OMEPRAZOLE [Concomitant]
     Dates: start: 20111206
  9. DIGOXIN [Concomitant]
     Dates: start: 20111215, end: 20120103
  10. VERAPAMIL [Concomitant]
     Dates: start: 20111206
  11. FOLIC ACID [Concomitant]
     Dates: start: 20111213
  12. CODEINE PHOSPHATE AND ACETAMINOPHEN [Concomitant]
     Dates: start: 20111216, end: 20120110
  13. PREDNISONE TAB [Concomitant]
     Dates: start: 20111206, end: 20111223
  14. ZOLEDRONIC ACID [Concomitant]
     Dates: start: 20111222, end: 20111222

REACTIONS (9)
  - NEUTROPENIA [None]
  - PERIPHERAL MOTOR NEUROPATHY [None]
  - CONFUSIONAL STATE [None]
  - PNEUMONIA [None]
  - DYSPNOEA [None]
  - PERIPHERAL SENSORY NEUROPATHY [None]
  - THROMBOCYTOPENIA [None]
  - MUCOSAL INFLAMMATION [None]
  - ANAEMIA [None]
